FAERS Safety Report 11169713 (Version 1)
Quarter: 2015Q2

REPORT INFORMATION
  Report Type: Report from Study
  Country: CO (occurrence: CO)
  Receive Date: 20150606
  Receipt Date: 20150606
  Transmission Date: 20150821
  Serious: Yes (Death)
  Sender: FDA-Public Use
  Company Number: PHHY2015CO067581

PATIENT
  Age: 20 Year

DRUGS (1)
  1. TOBI PODHALER [Suspect]
     Active Substance: TOBRAMYCIN
     Indication: CYSTIC FIBROSIS
     Dosage: 112 MG, Q12H (EVERY 12 HOURS)
     Route: 055
     Dates: start: 20130731

REACTIONS (1)
  - Death [Fatal]

NARRATIVE: CASE EVENT DATE: 20150513
